FAERS Safety Report 6924526-1 (Version None)
Quarter: 2010Q3

REPORT INFORMATION
  Report Type: 
  Country: None (occurrence: None)
  Receive Date: 20100816
  Receipt Date: 20100806
  Transmission Date: 20110219
  Serious: Yes (Hospitalization)
  Sender: FDA-Public Use
  Company Number: US-BIOGENIDEC-2010BI027053

PATIENT
  Age: 55 Year
  Sex: Male

DRUGS (6)
  1. AVONEX [Suspect]
     Indication: MULTIPLE SCLEROSIS
     Route: 030
     Dates: start: 20010806, end: 20100701
  2. PRIMIDONE [Concomitant]
     Indication: PROPHYLAXIS
     Route: 048
  3. GENERIC SLEEPING MEDICATION (NOS) [Concomitant]
     Indication: PROPHYLAXIS
     Route: 048
  4. BACLOFEN [Concomitant]
     Indication: PROPHYLAXIS
     Route: 048
  5. GABAPENTIN [Concomitant]
     Indication: PROPHYLAXIS
     Route: 048
  6. ALAZOPRAM [Concomitant]
     Indication: PROPHYLAXIS
     Route: 048

REACTIONS (6)
  - ERYTHEMA [None]
  - HYPERTENSION [None]
  - INFLUENZA LIKE ILLNESS [None]
  - NAUSEA [None]
  - OVERDOSE [None]
  - TREMOR [None]
